FAERS Safety Report 4994915-3 (Version None)
Quarter: 2006Q2

REPORT INFORMATION
  Report Type: 
  Country: None (occurrence: None)
  Receive Date: 20060508
  Receipt Date: 20060427
  Transmission Date: 20061013
  Serious: Yes (Other)
  Sender: FDA-Public Use
  Company Number: PHBS2006UA06414

PATIENT

DRUGS (1)
  1. MIACALCIN [Suspect]
     Route: 045

REACTIONS (2)
  - CONDITION AGGRAVATED [None]
  - CONVULSION [None]
